FAERS Safety Report 16818997 (Version 2)
Quarter: 2023Q1

REPORT INFORMATION
  Report Type: Spontaneous
  Country: US (occurrence: US)
  Receive Date: 20190917
  Receipt Date: 20230126
  Transmission Date: 20230417
  Serious: No
  Sender: FDA-Public Use
  Company Number: US-PFIZER INC-2019401202

PATIENT
  Sex: Female
  Weight: 71.67 kg

DRUGS (2)
  1. PREGABALIN [Suspect]
     Active Substance: PREGABALIN
     Indication: Fibromyalgia
     Dosage: UNK ( 4X A DAY, START DATE: STARTED GENERIC LAST QUARTER OF 2021)
     Route: 065
  2. SYNTHROID [Concomitant]
     Active Substance: LEVOTHYROXINE SODIUM
     Indication: Thyroid disorder
     Dosage: UNK
     Route: 065

REACTIONS (5)
  - Stress [Unknown]
  - Hyperhidrosis [Unknown]
  - Muscle twitching [Unknown]
  - Drug ineffective [Unknown]
  - Off label use [Unknown]
